FAERS Safety Report 4842844-8 (Version None)
Quarter: 2005Q4

REPORT INFORMATION
  Report Type: 
  Country: None (occurrence: None)
  Receive Date: 20051130
  Receipt Date: 20051117
  Transmission Date: 20060501
  Serious: Yes (Hospitalization)
  Sender: FDA-Public Use
  Company Number: 2005156689

PATIENT
  Age: 58 Year
  Sex: Male

DRUGS (6)
  1. ATORVASTATIN CALCIUM [Suspect]
     Indication: TYPE IIA HYPERLIPIDAEMIA
     Dosage: 40 MG (40 MG, 1 IN 1 D), ORAL
     Route: 048
     Dates: start: 20020101
  2. ACCUZIDE (HYDROCHLOROTHIAZIDE, QUINAPRIL) [Concomitant]
  3. METOPROLOL (METOPROLOL) [Concomitant]
  4. ACETYLSALICYLIC ACID SRT [Concomitant]
  5. ALLOPURINOL [Concomitant]
  6. FELODIPINE [Concomitant]

REACTIONS (1)
  - ANGINA PECTORIS [None]
